FAERS Safety Report 14742778 (Version 2)
Quarter: 2018Q2

REPORT INFORMATION
  Report Type: Spontaneous
  Country: BR (occurrence: BR)
  Receive Date: 20180410
  Receipt Date: 20180426
  Transmission Date: 20180711
  Serious: Yes (Hospitalization, Other)
  Sender: FDA-Public Use
  Company Number: PHHY2018BR062060

PATIENT
  Sex: Female
  Weight: 105 kg

DRUGS (6)
  1. VISKALDIX [Suspect]
     Active Substance: CLOPAMIDE\PINDOLOL
     Dosage: 1 DF, QD
     Route: 048
     Dates: end: 201710
  2. VISKALDIX [Suspect]
     Active Substance: CLOPAMIDE\PINDOLOL
     Indication: HYPERTENSION
     Dosage: 1 DF, QD (IN THE MORNING)
     Route: 048
     Dates: end: 201702
  3. CAPTOPRIL. [Suspect]
     Active Substance: CAPTOPRIL
     Indication: PRODUCT USED FOR UNKNOWN INDICATION
     Dosage: UNK
     Route: 065
  4. LOSARTAN. [Concomitant]
     Active Substance: LOSARTAN
     Indication: HYPERTENSION
     Dosage: 1 DF, QD
  5. LOSARTAN. [Concomitant]
     Active Substance: LOSARTAN
     Dosage: 2 DF, QD
     Route: 048
     Dates: start: 201710
  6. ATENOLOL. [Suspect]
     Active Substance: ATENOLOL
     Indication: PRODUCT USED FOR UNKNOWN INDICATION
     Dosage: UNK
     Route: 065

REACTIONS (5)
  - Headache [Not Recovered/Not Resolved]
  - Blood pressure abnormal [Recovering/Resolving]
  - Drug ineffective [Unknown]
  - Blood pressure increased [Not Recovered/Not Resolved]
  - Burning sensation [Not Recovered/Not Resolved]
